FAERS Safety Report 7064640-6 (Version None)
Quarter: 2010Q4

REPORT INFORMATION
  Report Type: 
  Country: None (occurrence: None)
  Receive Date: 20101022
  Receipt Date: 20101022
  Transmission Date: 20110411
  Serious: No
  Sender: FDA-Public Use
  Company Number: None

PATIENT
  Age: 53 Year
  Sex: Male
  Weight: 99.7913 kg

DRUGS (1)
  1. CIPRO [Suspect]
     Dosage: 500MG TWICE A DAY PO
     Route: 048
     Dates: start: 20090730, end: 20090806

REACTIONS (5)
  - ARTHRALGIA [None]
  - ARTHROPATHY [None]
  - CHONDROPATHY [None]
  - HYPOAESTHESIA [None]
  - LIGAMENT DISORDER [None]
